FAERS Safety Report 20662007 (Version 1)
Quarter: 2022Q2

REPORT INFORMATION
  Report Type: Spontaneous
  Country: US (occurrence: US)
  Receive Date: 20220401
  Receipt Date: 20220401
  Transmission Date: 20220721
  Serious: Yes (Hospitalization, Other)
  Sender: FDA-Public Use
  Company Number: US-GLENMARK PHARMACEUTICALS-2022GMK071445

PATIENT
  Age: 65 Year
  Sex: Female

DRUGS (2)
  1. HYDRALAZINE HCL [Suspect]
     Active Substance: HYDRALAZINE HYDROCHLORIDE
     Indication: Hypertension
     Dosage: UNK; DOSE UP-TITRATED 1 MONTH LATER TO 50 MG TWICE PER DAY
     Route: 048
  2. HYDRALAZINE HCL [Suspect]
     Active Substance: HYDRALAZINE HYDROCHLORIDE
     Dosage: 50 MILLIGRAM, BID
     Route: 048

REACTIONS (1)
  - Acute hepatic failure [Recovered/Resolved]
